FAERS Safety Report 16960797 (Version 1)
Quarter: 2019Q4

REPORT INFORMATION
  Report Type: Spontaneous
  Country: IT (occurrence: IT)
  Receive Date: 20191025
  Receipt Date: 20191025
  Transmission Date: 20200122
  Serious: Yes (Other)
  Sender: FDA-Public Use
  Company Number: IT-ACCORD-152721

PATIENT
  Age: 67 Year
  Sex: Male

DRUGS (2)
  1. CISPLATIN ACCORD HEALTHCARE [Suspect]
     Active Substance: CISPLATIN
     Indication: NEUROENDOCRINE CARCINOMA
     Dosage: STRENGTH 1 MG / ML, LAST DOSE ADMINISTERED ON 10-AUG-2019 AND 14-OCT-2019 RESPECTIVELY.
     Route: 042
     Dates: start: 20190808
  2. ETOPOSIDE TEVA [Suspect]
     Active Substance: ETOPOSIDE
     Indication: NEUROENDOCRINE CARCINOMA
     Dosage: STRENGTH  20 MG / ML, LAST DOSE ADMINISTERED ON 10-AUG-2019 AND 14-OCT-2019 RESPECTIVELY.
     Route: 042
     Dates: start: 20190808

REACTIONS (3)
  - Off label use [Unknown]
  - Anaemia [Recovering/Resolving]
  - Neutropenia [Recovering/Resolving]

NARRATIVE: CASE EVENT DATE: 20190812
